FAERS Safety Report 13126327 (Version 1)
Quarter: 2017Q1

REPORT INFORMATION
  Report Type: Spontaneous
  Country: JP (occurrence: JP)
  Receive Date: 20170118
  Receipt Date: 20170118
  Transmission Date: 20170428
  Serious: Yes (Hospitalization, Other)
  Sender: FDA-Public Use
  Company Number: JP-PFIZER INC-2017020534

PATIENT
  Age: 59 Year
  Sex: Male

DRUGS (1)
  1. AMIODARONE HCL [Suspect]
     Active Substance: AMIODARONE HYDROCHLORIDE
     Dosage: 300 MG, DAILY
     Route: 065

REACTIONS (4)
  - Goitre [Unknown]
  - Hyperthyroidism [Unknown]
  - Thyroiditis [Unknown]
  - Hepatic function abnormal [Unknown]
